FAERS Safety Report 4644690-7 (Version None)
Quarter: 2005Q2

REPORT INFORMATION
  Report Type: 
  Country: None (occurrence: None)
  Receive Date: 20050422
  Receipt Date: 20050413
  Transmission Date: 20051028
  Serious: Yes (Other)
  Sender: FDA-Public Use
  Company Number: 04-000681

PATIENT
  Age: 20 Year
  Sex: Female

DRUGS (1)
  1. ESTROSTEP 21 [Suspect]
     Dosage: ORAL
     Route: 048
     Dates: start: 20040101, end: 20040101

REACTIONS (2)
  - OVARIAN CYST [None]
  - POOR QUALITY DRUG ADMINISTERED [None]
